FAERS Safety Report 10677221 (Version 3)
Quarter: 2015Q1

REPORT INFORMATION
  Report Type: Report from Study
  Country: GB (occurrence: GB)
  Receive Date: 20141226
  Receipt Date: 20150121
  Transmission Date: 20150720
  Serious: Yes (Hospitalization)
  Sender: FDA-Public Use
  Company Number: GB-AMGEN-2014-1302

PATIENT
  Age: 64 Year
  Sex: Male

DRUGS (4)
  1. CARFILZOMIB [Suspect]
     Active Substance: CARFILZOMIB
     Indication: PLASMA CELL MYELOMA
     Dosage: FREQ. TEXT: DAYS 1, 2, 8, 9, 15, 16
     Route: 042
     Dates: start: 20140225
  2. CYCLOPHOSPHAMIDE. [Concomitant]
     Active Substance: CYCLOPHOSPHAMIDE
     Indication: PLASMA CELL MYELOMA
     Route: 048
     Dates: start: 20140225, end: 20140528
  3. LENALIDOMIDE [Concomitant]
     Active Substance: LENALIDOMIDE
     Indication: PLASMA CELL MYELOMA
     Route: 048
     Dates: start: 20140225, end: 20140609
  4. DEXAMETHASONE. [Concomitant]
     Active Substance: DEXAMETHASONE
     Indication: PLASMA CELL MYELOMA
     Route: 048
     Dates: start: 20140225, end: 20140605

REACTIONS (1)
  - Parainfluenzae virus infection [Recovered/Resolved]

NARRATIVE: CASE EVENT DATE: 20140610
